FAERS Safety Report 9904818 (Version 3)
Quarter: 2014Q1

REPORT INFORMATION
  Report Type: Spontaneous
  Country: FR (occurrence: None)
  Receive Date: 20140211
  Receipt Date: 20140311
  Transmission Date: 20141002
  Serious: Yes (Life-Threatening, Hospitalization)
  Sender: FDA-Public Use
  Company Number: FR-014596

PATIENT
  Age: 62 Year
  Sex: Male
  Weight: 92 kg

DRUGS (8)
  1. FIRMAGON [Suspect]
     Indication: PROSTATE CANCER
     Route: 058
     Dates: start: 201311, end: 20131022
  2. ASPEGIC [Concomitant]
  3. PLAVIX [Concomitant]
  4. SIMVASTATINE [Concomitant]
  5. BIPRETERAX [Concomitant]
  6. ISOPTINE [Concomitant]
  7. STAGID [Concomitant]
  8. OGAST [Concomitant]

REACTIONS (2)
  - Cerebrovascular accident [None]
  - Ischaemic stroke [None]
